FAERS Safety Report 19503502 (Version 1)
Quarter: 2021Q3

REPORT INFORMATION
  Report Type: Spontaneous
  Country: CN (occurrence: CN)
  Receive Date: 20210708
  Receipt Date: 20210708
  Transmission Date: 20211014
  Serious: Yes (Hospitalization, Other)
  Sender: FDA-Public Use
  Company Number: CN-UCBSA-2021031810

PATIENT
  Age: 46 Year
  Sex: Male
  Weight: 61 kg

DRUGS (1)
  1. LEVETIRACETAM. [Suspect]
     Active Substance: LEVETIRACETAM
     Indication: EPILEPSY
     Dosage: UNK
     Route: 048
     Dates: start: 20210510

REACTIONS (3)
  - Leukopenia [Recovering/Resolving]
  - Epilepsy [Unknown]
  - Paralysis [Unknown]

NARRATIVE: CASE EVENT DATE: 20210526
